APPROVED DRUG PRODUCT: KENACORT
Active Ingredient: TRIAMCINOLONE DIACETATE
Strength: EQ 4MG BASE/5ML
Dosage Form/Route: SYRUP;ORAL
Application: N012515 | Product #001
Applicant: DELCOR ASSET CORP
Approved: Approved Prior to Jan 1, 1982 | RLD: No | RS: No | Type: DISCN